FAERS Safety Report 24038453 (Version 1)
Quarter: 2024Q3

REPORT INFORMATION
  Report Type: Report from Study
  Country: US (occurrence: US)
  Receive Date: 20240702
  Receipt Date: 20240702
  Transmission Date: 20241017
  Serious: No
  Sender: RANBAXY
  Company Number: US-SUN PHARMACEUTICAL INDUSTRIES LTD-2024R1-445869

PATIENT

DRUGS (1)
  1. ISOTRETINOIN [Suspect]
     Active Substance: ISOTRETINOIN
     Indication: Acne
     Dosage: 40 MILLIGRAM, QD
     Route: 048
     Dates: start: 202404, end: 20240504

REACTIONS (4)
  - Back pain [Recovering/Resolving]
  - Arthralgia [Recovering/Resolving]
  - Abdominal discomfort [Recovering/Resolving]
  - Therapy cessation [Unknown]
